FAERS Safety Report 25094609 (Version 1)
Quarter: 2025Q1

REPORT INFORMATION
  Report Type: Report from Study
  Country: CA (occurrence: CA)
  Receive Date: 20250319
  Receipt Date: 20250319
  Transmission Date: 20250409
  Serious: Yes (Death, Other)
  Sender: TAKEDA
  Company Number: CA-TAKEDA-2022TUS061069

PATIENT
  Sex: Female

DRUGS (16)
  1. HUMAN IMMUNOGLOBULIN G [Suspect]
     Active Substance: HUMAN IMMUNOGLOBULIN G
     Indication: Secondary immunodeficiency
     Dosage: 16 GRAM, 1/WEEK
  2. HUMAN IMMUNOGLOBULIN G [Suspect]
     Active Substance: HUMAN IMMUNOGLOBULIN G
  3. HUMAN IMMUNOGLOBULIN G [Suspect]
     Active Substance: HUMAN IMMUNOGLOBULIN G
     Dosage: 14 GRAM, 1/WEEK
  4. LANREOTIDE ACETATE [Concomitant]
     Active Substance: LANREOTIDE ACETATE
  5. OCTREOTIDE [Concomitant]
     Active Substance: OCTREOTIDE
  6. LANTUS [Concomitant]
     Active Substance: INSULIN GLARGINE
  7. NOVORAPID [Concomitant]
     Active Substance: INSULIN ASPART
  8. ALLOPURINOL [Concomitant]
     Active Substance: ALLOPURINOL
  9. BETAHISTINE [Concomitant]
     Active Substance: BETAHISTINE
  10. SINGULAIR [Concomitant]
     Active Substance: MONTELUKAST SODIUM
  11. TIAZAC [Concomitant]
     Active Substance: DILTIAZEM HYDROCHLORIDE
  12. SPIRONOLACTONE [Concomitant]
     Active Substance: SPIRONOLACTONE
  13. THYROXINE [Concomitant]
     Active Substance: LEVOTHYROXINE
  14. VITAMIN D [Concomitant]
     Active Substance: VITAMIN D NOS
  15. HYDROCODONE [Concomitant]
     Active Substance: HYDROCODONE
  16. BENADRYL [Concomitant]
     Active Substance: DIPHENHYDRAMINE HYDROCHLORIDE

REACTIONS (2)
  - Death [Fatal]
  - COVID-19 [Unknown]
